FAERS Safety Report 7828920-6 (Version None)
Quarter: 2011Q4

REPORT INFORMATION
  Report Type: 
  Country: None (occurrence: None)
  Receive Date: 20111020
  Receipt Date: 20110927
  Transmission Date: 20120403
  Serious: No
  Sender: FDA-Public Use
  Company Number: US-MYLANLABS-2011S1020384

PATIENT
  Age: 73 Year
  Sex: Male
  Weight: 106.6 kg

DRUGS (1)
  1. POLYETHYLENE GLYCOL [Suspect]
     Indication: BOWEL PREPARATION
     Route: 048
     Dates: start: 20110925

REACTIONS (1)
  - THROAT IRRITATION [None]
